FAERS Safety Report 5727333-0 (Version None)
Quarter: 2008Q2

REPORT INFORMATION
  Report Type: 
  Country: None (occurrence: None)
  Receive Date: 20080505
  Receipt Date: 20080501
  Transmission Date: 20081010
  Serious: Yes (Life-Threatening)
  Sender: FDA-Public Use
  Company Number: IN-ASTRAZENECA-2008AP02866

PATIENT
  Age: 180 Day
  Sex: Female
  Weight: 3.4 kg

DRUGS (2)
  1. MEROPENEM [Suspect]
     Indication: SEPSIS
     Route: 042
     Dates: start: 20080327, end: 20080401
  2. AMIKACIN [Concomitant]
     Route: 065

REACTIONS (1)
  - STATUS EPILEPTICUS [None]
